FAERS Safety Report 24106697 (Version 2)
Quarter: 2024Q3

REPORT INFORMATION
  Report Type: Spontaneous
  Country: US (occurrence: US)
  Receive Date: 20240717
  Receipt Date: 20240820
  Transmission Date: 20241016
  Serious: No
  Sender: INCYTE
  Company Number: US-INCYTE CORPORATION-2024IN006823

PATIENT

DRUGS (2)
  1. OPZELURA [Suspect]
     Active Substance: RUXOLITINIB PHOSPHATE
     Indication: Dermatitis atopic
     Dosage: 1.5 PERCENT, 60 GMS, BID
     Route: 061
     Dates: start: 20240208, end: 20240610
  2. DUPIXENT [Concomitant]
     Active Substance: DUPILUMAB
     Indication: Dermatitis atopic
     Dosage: UNK
     Route: 065

REACTIONS (2)
  - Dermatitis atopic [Unknown]
  - Drug effect less than expected [Unknown]

NARRATIVE: CASE EVENT DATE: 20240610
